FAERS Safety Report 16324922 (Version 1)
Quarter: 2019Q2

REPORT INFORMATION
  Report Type: Spontaneous
  Country: US (occurrence: US)
  Receive Date: 20190411
  Receipt Date: 20190411
  Transmission Date: 20190711
  Serious: No
  Sender: FDA-Public Use
  Company Number: None

PATIENT
  Age: 64 Year
  Sex: Female

DRUGS (1)
  1. CAPECITABINE TAB 500MG [Suspect]
     Active Substance: CAPECITABINE
     Route: 048
     Dates: start: 20180607

REACTIONS (3)
  - Palmar-plantar erythrodysaesthesia syndrome [None]
  - Therapy cessation [None]
  - Herpes zoster [None]

NARRATIVE: CASE EVENT DATE: 20190411
